FAERS Safety Report 6882165-5 (Version None)
Quarter: 2010Q3

REPORT INFORMATION
  Report Type: 
  Country: None (occurrence: None)
  Receive Date: 20100729
  Receipt Date: 20100720
  Transmission Date: 20110219
  Serious: Yes (Death, Hospitalization)
  Sender: FDA-Public Use
  Company Number: FR-WYE-G06426610

PATIENT
  Sex: Male

DRUGS (17)
  1. PIPERACILLIN AND TAZOBACTAM [Suspect]
     Indication: BRONCHOPNEUMONIA
     Route: 042
     Dates: start: 20091111, end: 20091101
  2. PIPERACILLIN AND TAZOBACTAM [Suspect]
     Route: 042
     Dates: start: 20091101, end: 20091207
  3. NEXIUM [Concomitant]
     Indication: GASTROOESOPHAGEAL REFLUX DISEASE
     Route: 048
     Dates: start: 20091127
  4. TRIFLUCAN [Concomitant]
     Indication: BRONCHOPNEUMONIA
     Route: 048
     Dates: start: 20091120, end: 20091120
  5. ROCEPHIN [Concomitant]
     Indication: BRONCHOPNEUMONIA
     Route: 042
     Dates: start: 20091103, end: 20091105
  6. OMEPRAZOLE [Concomitant]
     Indication: GASTROOESOPHAGEAL REFLUX DISEASE
     Route: 051
     Dates: end: 20091120
  7. NOVOMIX [Concomitant]
     Indication: TYPE 2 DIABETES MELLITUS
     Route: 058
  8. BRICANYL [Concomitant]
     Indication: CHRONIC OBSTRUCTIVE PULMONARY DISEASE
     Route: 055
  9. SERETIDE [Concomitant]
     Indication: CHRONIC OBSTRUCTIVE PULMONARY DISEASE
     Route: 055
  10. RISORDAN [Concomitant]
     Indication: ANGINA PECTORIS
     Dosage: UNKNOWN
     Dates: start: 20091120, end: 20091121
  11. DISCOTRINE [Concomitant]
     Indication: ANGINA PECTORIS
     Route: 062
  12. CALCIPARINE [Concomitant]
     Indication: THROMBOSIS PROPHYLAXIS
     Dosage: UNKNOWN
     Route: 058
     Dates: start: 20091127, end: 20091203
  13. HEPARIN SODIUM [Concomitant]
     Indication: THROMBOSIS PROPHYLAXIS
     Dosage: UNKNOWN
     Route: 058
     Dates: start: 20091203
  14. LASIX [Concomitant]
     Indication: HYPERTENSION
     Route: 042
  15. TRANSIPEG [Concomitant]
     Indication: CONSTIPATION
     Route: 048
  16. DEBRIDAT [Concomitant]
     Route: 048
     Dates: end: 20091120
  17. NEBCIN [Suspect]
     Indication: BRONCHOPNEUMONIA
     Route: 042
     Dates: start: 20091105, end: 20091111

REACTIONS (4)
  - FLUID RETENTION [None]
  - MULTI-ORGAN FAILURE [None]
  - RENAL FAILURE ACUTE [None]
  - SODIUM RETENTION [None]
